FAERS Safety Report 7680456-1 (Version None)
Quarter: 2011Q3

REPORT INFORMATION
  Report Type: 
  Country: None (occurrence: None)
  Receive Date: 20110812
  Receipt Date: 20110801
  Transmission Date: 20111222
  Serious: Yes (Hospitalization)
  Sender: FDA-Public Use
  Company Number: US-JNJFOC-20080202176

PATIENT
  Sex: Female
  Weight: 44 kg

DRUGS (3)
  1. INFLIXIMAB [Suspect]
     Dosage: 13TH DOSE
     Route: 042
     Dates: start: 20080721
  2. INFLIXIMAB [Suspect]
     Route: 042
     Dates: start: 20070102
  3. INFLIXIMAB [Suspect]
     Indication: INFLAMMATORY BOWEL DISEASE
     Dosage: TOTAL 4 DOSES
     Route: 042
     Dates: start: 20070427

REACTIONS (2)
  - ABDOMINAL PAIN [None]
  - FISTULA [None]
